FAERS Safety Report 8778047 (Version 3)
Quarter: 2012Q4

REPORT INFORMATION
  Report Type: 
  Country: US (occurrence: US)
  Receive Date: 20120912
  Receipt Date: 20121221
  Transmission Date: 20130627
  Serious: No
  Sender: FDA-Public Use
  Company Number: US-ASTRAZENECA-2012SE60896

PATIENT
  Age: 53 Year
  Sex: Female
  Weight: 66.7 kg

DRUGS (2)
  1. SEROQUEL [Suspect]
     Indication: BIPOLAR DISORDER
     Route: 048
     Dates: start: 2001, end: 201208
  2. TEMAZEPAM [Concomitant]
     Indication: SLEEP DISORDER

REACTIONS (6)
  - Depression [Not Recovered/Not Resolved]
  - Insomnia [Not Recovered/Not Resolved]
  - Adverse event [Unknown]
  - Activities of daily living impaired [Unknown]
  - Malaise [Unknown]
  - Drug dose omission [Not Recovered/Not Resolved]
